FAERS Safety Report 6690759-5 (Version None)
Quarter: 2010Q2

REPORT INFORMATION
  Report Type: 
  Country: None (occurrence: None)
  Receive Date: 20100421
  Receipt Date: 20100409
  Transmission Date: 20101027
  Serious: Yes (Congenital Anomaly)
  Sender: FDA-Public Use
  Company Number: FR-PFIZER INC-2010047779

PATIENT
  Sex: Male
  Weight: 3.61 kg

DRUGS (2)
  1. ATARAX [Suspect]
     Dosage: 100 MG, DAILY CONTINUED DURING ALL THE PREGNANCY
     Route: 064
  2. ATARAX [Suspect]
     Dosage: 100 MG DAILY
     Route: 063

REACTIONS (5)
  - ANOTIA [None]
  - CONGENITAL EYELID MALFORMATION [None]
  - CONGENITAL RENAL DISORDER [None]
  - DRUG EXPOSURE DURING PREGNANCY [None]
  - DRUG EXPOSURE VIA BREAST MILK [None]
